FAERS Safety Report 23625610 (Version 3)
Quarter: 2024Q1

REPORT INFORMATION
  Report Type: Spontaneous
  Country: JP (occurrence: JP)
  Receive Date: 20240313
  Receipt Date: 20240328
  Transmission Date: 20240409
  Serious: Yes (Other)
  Sender: FDA-Public Use
  Company Number: JP-CHUGAI-2023035851

PATIENT
  Age: 78 Year
  Sex: Female
  Weight: 61 kg

DRUGS (1)
  1. VABYSMO [Suspect]
     Active Substance: FARICIMAB\FARICIMAB-SVOA
     Indication: Age-related macular degeneration
     Dosage: FORM STRENGTH: 120MG/ML, RIGHT EYE
     Route: 050
     Dates: start: 20230727, end: 20230818

REACTIONS (4)
  - Eye inflammation [Recovered/Resolved]
  - Iritis [Recovered/Resolved]
  - Vitritis [Recovered/Resolved]
  - Retinal vasculitis [Recovered/Resolved]

NARRATIVE: CASE EVENT DATE: 20230915
